FAERS Safety Report 15547068 (Version 2)
Quarter: 2018Q4

REPORT INFORMATION
  Report Type: Spontaneous
  Country: US (occurrence: US)
  Receive Date: 20181024
  Receipt Date: 20181031
  Transmission Date: 20190205
  Serious: No
  Sender: FDA-Public Use
  Company Number: PHEH2018US043951

PATIENT
  Sex: Male

DRUGS (1)
  1. ZARXIO [Suspect]
     Active Substance: FILGRASTIM-SNDZ
     Indication: PRODUCT USED FOR UNKNOWN INDICATION
     Dosage: 480 UG, Q2W
     Route: 065
     Dates: start: 20180824

REACTIONS (6)
  - White blood cell count decreased [Unknown]
  - Dyspnoea [Recovering/Resolving]
  - Red blood cell count decreased [Recovering/Resolving]
  - Hyperhidrosis [Unknown]
  - Pyrexia [Unknown]
  - Pain [Unknown]
